FAERS Safety Report 7451021-6 (Version None)
Quarter: 2011Q2

REPORT INFORMATION
  Report Type: 
  Country: None (occurrence: None)
  Receive Date: 20110502
  Receipt Date: 20110425
  Transmission Date: 20111010
  Serious: Yes (Hospitalization)
  Sender: FDA-Public Use
  Company Number: JP-ROCHE-773310

PATIENT
  Sex: Male
  Weight: 172.9 kg

DRUGS (15)
  1. DOMPERIDONE [Concomitant]
     Dates: start: 20110208, end: 20110325
  2. BLINDED BEVACIZUMAB [Suspect]
     Indication: GLIOBLASTOMA
     Dosage: FORM: INFUSION, DOSE: BLINDED, FREQUENCY: D1Q2W
     Route: 042
     Dates: start: 20110208
  3. URSODIOL [Concomitant]
     Dates: start: 20110404
  4. PREDNISOLONE [Concomitant]
     Dates: start: 20110207, end: 20110425
  5. FAMOTIDINE [Concomitant]
     Dates: start: 20101201, end: 20110425
  6. VALPROATE SODIUM [Concomitant]
     Dates: start: 20110124, end: 20110329
  7. SULFAMETHOXAZOLE TRIMETHOPRIM [Concomitant]
     Dates: start: 20110208, end: 20110325
  8. DIAZEPAM [Concomitant]
     Dosage: AS PER NEEDED
     Dates: start: 20110404
  9. SENNOSIDE [Concomitant]
     Dosage: AS EPR NEEDED
     Dates: start: 20110223, end: 20110425
  10. DEXAMETHASONE [Concomitant]
     Dates: start: 20101201, end: 20110206
  11. DIPHENHYDRAMINE [Concomitant]
     Dates: start: 20110329
  12. ZONISAMIDE [Concomitant]
     Dates: start: 20110329, end: 20110404
  13. TEMOZOLOMIDE [Suspect]
     Indication: GLIOBLASTOMA
     Dosage: FREQUENCY: QD
     Route: 048
     Dates: start: 20110208
  14. MAGNESIUM OXIDE [Concomitant]
     Dosage: AS PER NEEDED
     Dates: start: 20110209, end: 20110425
  15. SODIUM BICARBONATE/SODIUM PHOSPHATE MONOBASIC [Concomitant]
     Dosage: AS PER NEEDED
     Dates: start: 20110216, end: 20110312

REACTIONS (1)
  - LIVER DISORDER [None]
